FAERS Safety Report 8206988-5 (Version None)
Quarter: 2012Q1

REPORT INFORMATION
  Report Type: 
  Country: None (occurrence: None)
  Receive Date: 20120312
  Receipt Date: 20120227
  Transmission Date: 20120608
  Serious: Yes (Other)
  Sender: FDA-Public Use
  Company Number: NGX_00923_2012

PATIENT
  Sex: Female

DRUGS (2)
  1. QUTENZA [Suspect]
     Indication: NEURALGIA
     Dosage: (DF [PATCH, APPLIED ON HER WRIST] TOPICAL)
     Route: 061
     Dates: start: 20120216, end: 20120216
  2. ANALGESICS [Concomitant]

REACTIONS (7)
  - APPLICATION SITE PAPULES [None]
  - APPLICATION SITE BURN [None]
  - APPLICATION SITE VESICLES [None]
  - APPLICATION SITE PRURITUS [None]
  - BURNS SECOND DEGREE [None]
  - APPLICATION SITE PAIN [None]
  - APPLICATION SITE REACTION [None]
